FAERS Safety Report 6740786-4 (Version None)
Quarter: 2010Q2

REPORT INFORMATION
  Report Type: 
  Country: None (occurrence: None)
  Receive Date: 20100525
  Receipt Date: 20100525
  Transmission Date: 20101027
  Serious: Yes (Other)
  Sender: FDA-Public Use
  Company Number: None

PATIENT
  Age: 84 Year
  Sex: Female
  Weight: 61.2356 kg

DRUGS (2)
  1. LISINOPRIL [Suspect]
     Dosage: 2.5 MG
  2. PRAVASTATIN SODIUM [Suspect]
     Dosage: 10 MG

REACTIONS (13)
  - CHOKING [None]
  - CHOKING SENSATION [None]
  - COUGH [None]
  - DECREASED APPETITE [None]
  - FATIGUE [None]
  - FEELING ABNORMAL [None]
  - METAMORPHOPSIA [None]
  - MUSCULAR WEAKNESS [None]
  - NAUSEA [None]
  - NO THERAPEUTIC RESPONSE [None]
  - RESPIRATORY DISORDER [None]
  - VISUAL IMPAIRMENT [None]
  - WEIGHT DECREASED [None]
